FAERS Safety Report 9055229 (Version 1)
Quarter: 2013Q1

REPORT INFORMATION
  Report Type: Spontaneous
  Country: US (occurrence: US)
  Receive Date: 20130206
  Receipt Date: 20130206
  Transmission Date: 20140127
  Serious: No
  Sender: FDA-Public Use
  Company Number: US-TEVA-383533USA

PATIENT
  Age: 18 None
  Sex: Female
  Weight: 77.18 kg

DRUGS (3)
  1. PLAN B ONE-STEP [Suspect]
     Indication: POST COITAL CONTRACEPTION
     Dosage: 1.5 MILLIGRAM DAILY;
     Route: 048
     Dates: start: 20130127, end: 20130127
  2. BEYAZ [Concomitant]
     Indication: ACNE
  3. BEYAZ [Concomitant]
     Indication: PREMENSTRUAL SYNDROME

REACTIONS (1)
  - Menstruation irregular [Not Recovered/Not Resolved]
